FAERS Safety Report 7617485-X (Version None)
Quarter: 2011Q3

REPORT INFORMATION
  Report Type: 
  Country: None (occurrence: None)
  Receive Date: 20110718
  Receipt Date: 20110713
  Transmission Date: 20111222
  Serious: No
  Sender: FDA-Public Use
  Company Number: US-PFIZER INC-2011158933

PATIENT
  Sex: Female
  Weight: 69.841 kg

DRUGS (11)
  1. HALCION [Concomitant]
     Indication: SLEEP DISORDER
     Dosage: UNK
  2. CHLORTHALIDONE [Concomitant]
     Dosage: UNK
  3. VITAMIN D [Concomitant]
     Dosage: UNK
  4. LYRICA [Suspect]
     Indication: FIBROMYALGIA
     Dosage: 50 MG, 2X/DAY
     Route: 048
     Dates: start: 20110712
  5. ACETYLSALICYLIC ACID [Concomitant]
     Dosage: 81 MG, UNK
  6. SIMVASTATIN [Concomitant]
     Indication: BLOOD CHOLESTEROL INCREASED
     Dosage: UNK
  7. LISINOPRIL [Concomitant]
     Dosage: UNK
  8. VILAZODONE HYDROCHLORIDE [Concomitant]
     Indication: DEPRESSION
     Dosage: UNK
  9. PROPRANOLOL [Concomitant]
     Dosage: UNK
  10. TRAZODONE [Concomitant]
     Indication: SLEEP DISORDER
     Dosage: UNK
  11. MULTI-VITAMINS [Concomitant]
     Dosage: UNK

REACTIONS (3)
  - DIZZINESS [None]
  - MUSCULOSKELETAL STIFFNESS [None]
  - BACK PAIN [None]
